FAERS Safety Report 10159684 (Version 1)
Quarter: 2014Q2

REPORT INFORMATION
  Report Type: Spontaneous
  Country: US (occurrence: US)
  Receive Date: 20140508
  Receipt Date: 20140508
  Transmission Date: 20141212
  Serious: No
  Sender: FDA-Public Use
  Company Number: US-GLAXOSMITHKLINE-A1021497A

PATIENT
  Age: 59 Year
  Sex: Female
  Weight: 73.6 kg

DRUGS (8)
  1. TYKERB [Suspect]
     Indication: BREAST CANCER METASTATIC
     Dosage: 1000MG IN THE MORNING
     Route: 048
  2. ZOMETA [Suspect]
  3. LETROZOLE [Concomitant]
  4. MAGNESIUM [Concomitant]
  5. CALCIUM [Concomitant]
  6. VITAMIN B [Concomitant]
  7. B COMPLEX [Concomitant]
  8. HERCEPTIN [Concomitant]

REACTIONS (9)
  - Laceration [Not Recovered/Not Resolved]
  - Rash erythematous [Recovered/Resolved]
  - Rash [Recovered/Resolved]
  - Retracted nipple [Not Recovered/Not Resolved]
  - Dyspnoea exertional [Not Recovered/Not Resolved]
  - Breast discharge [Unknown]
  - Pain in jaw [Unknown]
  - Pain [Unknown]
  - Neuropathy peripheral [Unknown]
